FAERS Safety Report 13484198 (Version 5)
Quarter: 2018Q1

REPORT INFORMATION
  Report Type: Report from Study
  Country: RU (occurrence: RU)
  Receive Date: 20170425
  Receipt Date: 20180201
  Transmission Date: 20180508
  Serious: Yes (Other)
  Sender: FDA-Public Use
  Company Number: RU-ROCHE-1923065

PATIENT
  Age: 64 Year
  Sex: Male
  Weight: 64 kg

DRUGS (32)
  1. ERYTHROMYCIN. [Concomitant]
     Active Substance: ERYTHROMYCIN
     Indication: RASH PAPULAR
     Route: 061
     Dates: start: 20170130
  2. ERALFON [Concomitant]
     Route: 058
     Dates: start: 20170328, end: 20170328
  3. ERALFON [Concomitant]
     Route: 058
     Dates: start: 20170503, end: 20170503
  4. TORASEMIDE [Concomitant]
     Active Substance: TORSEMIDE
     Indication: OEDEMA PERIPHERAL
     Route: 048
     Dates: start: 20170412
  5. ETAMSYLATE [Concomitant]
     Active Substance: ETHAMSYLATE
     Route: 030
     Dates: start: 20170504
  6. OMEPRAZOLE. [Concomitant]
     Active Substance: OMEPRAZOLE
     Indication: DUODENAL ULCER
     Route: 048
     Dates: start: 2015
  7. NOLPAZA [Concomitant]
     Active Substance: PANTOPRAZOLE SODIUM
     Indication: DUODENAL ULCER
     Route: 048
     Dates: start: 2015
  8. PANCREATIN [Concomitant]
     Active Substance: PANCRELIPASE
     Indication: PANCREATITIS CHRONIC
     Route: 048
     Dates: start: 2014
  9. ERALFON [Concomitant]
     Route: 058
     Dates: start: 20170405, end: 20170405
  10. HEPTRAL [Concomitant]
     Active Substance: ADEMETIONINE
     Indication: HEPATOTOXICITY
     Route: 048
     Dates: start: 20170428
  11. ATEZOLIZUMAB. [Suspect]
     Active Substance: ATEZOLIZUMAB
     Indication: COLORECTAL ADENOCARCINOMA
     Dosage: DATE OF MOST RECENT DOSE 840 MG OF ATEZOLIZUMAB PRIOR TO EVENT ONSET 05/APR/2017 AT 10:50
     Route: 042
     Dates: start: 20170120
  12. LORATADINE. [Concomitant]
     Active Substance: LORATADINE
     Indication: RASH PAPULAR
     Route: 065
     Dates: start: 20170127
  13. HEPTRAL [Concomitant]
     Active Substance: ADEMETIONINE
     Route: 042
     Dates: start: 20170504
  14. MEXIDOL [Concomitant]
     Route: 030
     Dates: start: 20170502
  15. HEPTOR [Concomitant]
     Indication: METASTASES TO LIVER
     Route: 048
     Dates: start: 2015, end: 20170428
  16. PREDUCTAL [Concomitant]
     Active Substance: TRIMETAZIDINE DIHYDROCHLORIDE
     Indication: MYOCARDIAL ISCHAEMIA
     Route: 048
     Dates: start: 2010
  17. ERALFON [Concomitant]
     Indication: ANAEMIA
     Route: 058
     Dates: start: 20170321, end: 20170321
  18. ERALFON [Concomitant]
     Route: 058
     Dates: start: 20170420, end: 20170420
  19. ODESTON [Concomitant]
     Route: 048
     Dates: start: 20170429
  20. GLUCOSE [Concomitant]
     Active Substance: DEXTROSE
     Indication: HEPATOTOXICITY
     Route: 042
     Dates: start: 20170504
  21. CONCOR [Concomitant]
     Active Substance: BISOPROLOL FUMARATE
     Indication: MYOCARDIAL ISCHAEMIA
     Route: 048
     Dates: start: 201703
  22. COBIMETINIB. [Suspect]
     Active Substance: COBIMETINIB
     Indication: COLORECTAL ADENOCARCINOMA
     Dosage: DATE OF MOST RECENT DOSE 60 MG OF COBIMETINIB PRIOR TO EVENT ONSET 11/APR/2017
     Route: 048
     Dates: start: 20170120
  23. CEREPRO [Concomitant]
     Indication: VERTIGO
     Route: 048
     Dates: start: 20170210, end: 20170428
  24. LASIX [Concomitant]
     Active Substance: FUROSEMIDE
     Indication: OEDEMA PERIPHERAL
     Route: 042
     Dates: start: 20170503
  25. NEBILONG [Concomitant]
     Indication: OEDEMA PERIPHERAL
     Route: 048
     Dates: start: 20170412
  26. ERALFON [Concomitant]
     Indication: ANAEMIA
     Route: 058
     Dates: start: 20170427, end: 20170427
  27. DUSPATALIN [Concomitant]
     Active Substance: MEBEVERINE HYDROCHLORIDE
     Indication: MUSCULOSKELETAL CHEST PAIN
     Route: 048
     Dates: start: 201612
  28. NORMAL SALINE [Concomitant]
     Active Substance: SODIUM CHLORIDE
     Route: 042
     Dates: start: 20170503, end: 20170503
  29. ZILT [Concomitant]
     Indication: THROMBOSIS
     Route: 048
     Dates: start: 2015, end: 20170504
  30. HEPTRAL [Concomitant]
     Active Substance: ADEMETIONINE
     Route: 048
     Dates: start: 20170429
  31. ETAMSYLATE [Concomitant]
     Active Substance: ETHAMSYLATE
     Indication: ANAEMIA
     Route: 030
     Dates: start: 20170503
  32. PHOSPHOGLIV [Concomitant]
     Indication: METASTASES TO LIVER
     Route: 048
     Dates: start: 2015, end: 20170428

REACTIONS (1)
  - Rhabdomyolysis [Not Recovered/Not Resolved]

NARRATIVE: CASE EVENT DATE: 20170418
